FAERS Safety Report 4322089-0 (Version None)
Quarter: 2004Q1

REPORT INFORMATION
  Report Type: 
  Country: None (occurrence: None)
  Receive Date: 20040323
  Receipt Date: 20040108
  Transmission Date: 20041129
  Serious: Yes (Death, Hospitalization)
  Sender: FDA-Public Use
  Company Number: GB-GLAXOSMITHKLINE-B0319267A

PATIENT
  Age: 69 Year
  Sex: Male
  Weight: 75 kg

DRUGS (3)
  1. REQUIP [Suspect]
     Indication: PARKINSON'S DISEASE
     Dosage: 20MG UNKNOWN
     Route: 048
     Dates: start: 19990101, end: 20030829
  2. ENTACAPONE [Concomitant]
     Indication: PARKINSON'S DISEASE
     Dosage: 800MG UNKNOWN
     Route: 048
     Dates: start: 20030101, end: 20030829
  3. SINEMET CR [Concomitant]
     Indication: PARKINSON'S DISEASE
     Dosage: 7UNIT PER DAY
     Route: 048
     Dates: start: 19980101, end: 20030829

REACTIONS (7)
  - FLUID RETENTION [None]
  - HILAR LYMPHADENOPATHY [None]
  - LUNG CONSOLIDATION [None]
  - LYMPHADENOPATHY MEDIASTINAL [None]
  - PLEURAL EFFUSION [None]
  - PNEUMONIA [None]
  - PULMONARY FIBROSIS [None]
